FAERS Safety Report 8978020 (Version 1)
Quarter: 2012Q4

REPORT INFORMATION
  Report Type: Report from Study
  Country: FR (occurrence: FR)
  Receive Date: 20121220
  Receipt Date: 20121220
  Transmission Date: 20130627
  Serious: Yes (Death)
  Sender: FDA-Public Use
  Company Number: FR-ROCHE-1170337

PATIENT
  Age: 75 Year
  Sex: Male
  Weight: 103 kg

DRUGS (13)
  1. RITUXIMAB [Suspect]
     Indication: CHRONIC LYMPHOCYTIC LEUKAEMIA
     Route: 042
     Dates: start: 20090513, end: 20090820
  2. RITUXIMAB [Suspect]
     Dosage: day 1
     Route: 042
     Dates: start: 20090513, end: 20090820
  3. RITUXIMAB [Suspect]
     Dosage: Day 15
     Route: 042
  4. RITUXIMAB [Suspect]
     Route: 065
     Dates: start: 20090822
  5. FLUDARABINE [Suspect]
     Indication: CHRONIC LYMPHOCYTIC LEUKAEMIA
     Route: 048
     Dates: start: 20090513, end: 20090822
  6. FLUDARABINE [Suspect]
     Dosage: Day 1, 2, 3
     Route: 048
  7. FLUDARABINE [Suspect]
     Route: 065
     Dates: start: 20090822
  8. CYCLOPHOSPHAMIDE [Suspect]
     Indication: CHRONIC LYMPHOCYTIC LEUKAEMIA
     Route: 048
     Dates: start: 20090513, end: 20090822
  9. CYCLOPHOSPHAMIDE [Suspect]
     Dosage: Day 1, 2, 3
     Route: 048
  10. CYCLOPHOSPHAMIDE [Suspect]
     Route: 065
     Dates: start: 20090822
  11. ZELITREX [Concomitant]
     Dosage: 2
     Route: 065
     Dates: start: 20090822
  12. PENTACARINAT [Concomitant]
     Route: 065
     Dates: start: 200910
  13. GRANOCYTE [Concomitant]
     Indication: NEUTROPENIA
     Route: 042
     Dates: start: 201004

REACTIONS (2)
  - Hypogammaglobulinaemia [Fatal]
  - Pancytopenia [Fatal]
